FAERS Safety Report 6176718-X (Version None)
Quarter: 2009Q2

REPORT INFORMATION
  Report Type: 
  Country: None (occurrence: None)
  Receive Date: 20090501
  Receipt Date: 20080314
  Transmission Date: 20091009
  Serious: Yes (Death, Other)
  Sender: FDA-Public Use
  Company Number: US-ALEXION-A200800053

PATIENT

DRUGS (2)
  1. SOLIRIS [Suspect]
     Indication: HAEMOLYTIC ANAEMIA
     Dosage: UNK MG, SINGLE
     Route: 042
     Dates: start: 20080313, end: 20080313
  2. HEPARIN [Concomitant]
     Indication: DEEP VEIN THROMBOSIS

REACTIONS (2)
  - DEATH [None]
  - GASTROINTESTINAL HAEMORRHAGE [None]
